FAERS Safety Report 14450341 (Version 2)
Quarter: 2018Q1

REPORT INFORMATION
  Report Type: Spontaneous
  Country: IT (occurrence: IT)
  Receive Date: 20180129
  Receipt Date: 20180209
  Transmission Date: 20180509
  Serious: Yes (Death, Life-Threatening, Hospitalization, Other)
  Sender: FDA-Public Use
  Company Number: IT-TAKEDA-TIF2004A00041

PATIENT
  Age: 42 Year
  Sex: Female

DRUGS (21)
  1. YOVIS [Concomitant]
     Dosage: UNK UNK, QD
     Route: 048
  2. MEPRAL [Concomitant]
     Active Substance: OMEPRAZOLE SODIUM
     Dosage: 20 MG, BID
     Dates: start: 20040920, end: 20041118
  3. LANSOX [Suspect]
     Active Substance: LANSOPRAZOLE
     Indication: GASTRIC ULCER HAEMORRHAGE
     Dosage: 15 MG, BID
     Route: 048
     Dates: start: 20041119, end: 20041121
  4. MAALOX ANTACID [Concomitant]
     Active Substance: ALUMINUM HYDROXIDE\DIMETHICONE\MAGNESIUM HYDROXIDE
     Indication: DUODENITIS
  5. METHYLENE BLUE. [Concomitant]
     Active Substance: METHYLENE BLUE
     Dosage: UNK
  6. EUTIROX [Concomitant]
     Active Substance: LEVOTHYROXINE SODIUM
     Indication: HYPOTHYROIDISM
     Dosage: UNK
  7. MAALOX ANTACID [Concomitant]
     Active Substance: ALUMINUM HYDROXIDE\DIMETHICONE\MAGNESIUM HYDROXIDE
     Indication: GASTRITIS
     Dosage: UNK UNK, QD
     Route: 048
  8. EPREX [Concomitant]
     Active Substance: ERYTHROPOIETIN
     Indication: ANAEMIA
     Dosage: 6000 IU, 3/WEEK
     Route: 042
  9. METILPREDNISOLONE [Concomitant]
     Active Substance: METHYLPREDNISOLONE
     Dosage: 250 MG, Q6HR
  10. HEPARIN [Concomitant]
     Active Substance: HEPARIN SODIUM
     Dosage: UNK
  11. SUCRALFIN [Concomitant]
     Indication: GASTRITIS
     Dosage: 2 G, UNK
     Route: 048
  12. PRO EFFERALGAN [Concomitant]
     Dosage: UNK
     Route: 051
  13. NEBILOX [Concomitant]
     Active Substance: NEBIVOLOL HYDROCHLORIDE
     Indication: SUPRAVENTRICULAR TACHYCARDIA
     Dosage: 2.5 MG, BID
     Route: 048
  14. RENAGEL [Concomitant]
     Active Substance: SEVELAMER HYDROCHLORIDE
     Indication: HYPERPARATHYROIDISM
     Dosage: 800 MG, TID
     Route: 048
  15. SUCRALFIN [Concomitant]
     Indication: DUODENITIS
  16. VITAMINS NOS [Concomitant]
     Active Substance: VITAMINS
     Dosage: UNK
  17. TINSET [Concomitant]
     Active Substance: OXATOMIDE
     Dosage: UNK
  18. NEBILOX [Concomitant]
     Active Substance: NEBIVOLOL HYDROCHLORIDE
     Indication: SUPRAVENTRICULAR TACHYCARDIA
  19. MYCOSTATIN [Concomitant]
     Active Substance: NYSTATIN
     Dosage: UNK UNK, BID
     Route: 048
  20. ZANTAC [Concomitant]
     Active Substance: RANITIDINE HYDROCHLORIDE
     Dosage: UNK
     Route: 042
  21. CALCIJEX                           /00514701/ [Concomitant]
     Indication: HYPERPARATHYROIDISM PRIMARY
     Dosage: 0.57 MG, UNK
     Route: 065

REACTIONS (8)
  - Face oedema [Fatal]
  - Stomatitis [Fatal]
  - Cardiac arrest [Fatal]
  - Toxic epidermal necrolysis [Fatal]
  - Conjunctivitis [Fatal]
  - Mucosal inflammation [Fatal]
  - Stevens-Johnson syndrome [Fatal]
  - Erythema multiforme [Fatal]

NARRATIVE: CASE EVENT DATE: 20041122
